FAERS Safety Report 5229917-5 (Version None)
Quarter: 2007Q1

REPORT INFORMATION
  Report Type: 
  Country: None (occurrence: None)
  Receive Date: 20070206
  Receipt Date: 20060626
  Transmission Date: 20070707
  Serious: No
  Sender: FDA-Public Use
  Company Number: US-GLAXOSMITHKLINE-A0610358A

PATIENT
  Age: 44 Year
  Sex: Female

DRUGS (2)
  1. PAXIL [Suspect]
     Indication: DEPRESSION
     Dosage: 10MG PER DAY
     Route: 048
     Dates: start: 20060623
  2. NO CONCURRENT MEDICATION [Concomitant]

REACTIONS (3)
  - ABDOMINAL PAIN UPPER [None]
  - BURNING SENSATION [None]
  - ORAL DISCOMFORT [None]
